FAERS Safety Report 6198303-6 (Version None)
Quarter: 2009Q2

REPORT INFORMATION
  Report Type: 
  Country: None (occurrence: None)
  Receive Date: 20090521
  Receipt Date: 20090508
  Transmission Date: 20091009
  Serious: Yes (Other)
  Sender: FDA-Public Use
  Company Number: US-ELI_LILLY_AND_COMPANY-US200905001828

PATIENT
  Sex: Male

DRUGS (4)
  1. CYMBALTA [Suspect]
     Indication: PAIN
     Dosage: 30 MG, UNK
     Dates: start: 20090401, end: 20090505
  2. NEURONTIN [Concomitant]
     Indication: MULTIPLE SCLEROSIS
  3. CLONOPIN [Concomitant]
     Dosage: UNK, DAILY (1/D)
  4. LORTAB [Concomitant]
     Indication: PAIN
     Dosage: UNK, AS NEEDED

REACTIONS (7)
  - DRUG HYPERSENSITIVITY [None]
  - FEELING ABNORMAL [None]
  - HYPERSENSITIVITY [None]
  - OBSTRUCTIVE AIRWAYS DISORDER [None]
  - RASH PUSTULAR [None]
  - SCAR [None]
  - URTICARIA [None]
